FAERS Safety Report 8034615-9 (Version None)
Quarter: 2012Q1

REPORT INFORMATION
  Report Type: 
  Country: None (occurrence: None)
  Receive Date: 20120110
  Receipt Date: 20120103
  Transmission Date: 20120608
  Serious: Yes (Hospitalization, Other)
  Sender: FDA-Public Use
  Company Number: US-B.I. PHARMACEUTICALS,INC./RIDGEFIELD-2012-BP-00175BP

PATIENT
  Sex: Male

DRUGS (11)
  1. NORCO [Concomitant]
     Indication: PAIN IN EXTREMITY
     Dates: start: 20100801
  2. LIPITOR [Concomitant]
     Indication: BLOOD CHOLESTEROL INCREASED
  3. SPIRIVA [Concomitant]
     Indication: ASTHMA
     Route: 055
     Dates: start: 19900101
  4. ZANTAC [Suspect]
     Indication: DYSPEPSIA
     Dosage: 300 MG
     Route: 048
     Dates: start: 20111101
  5. NEXIUM [Concomitant]
     Indication: DYSPEPSIA
     Dates: start: 20111101, end: 20111101
  6. NEBULIZERS [Concomitant]
     Indication: ASTHMA
     Route: 055
  7. ZANTAC [Suspect]
     Dosage: 450 MG
     Route: 048
     Dates: start: 20120103, end: 20120103
  8. ZANTAC 150 [Suspect]
     Indication: DYSPEPSIA
     Dosage: 300 MG
     Route: 048
     Dates: start: 20070101, end: 20111101
  9. ADVAIR DISKUS 100/50 [Concomitant]
     Indication: ASTHMA
  10. TIAZAC [Concomitant]
     Indication: HYPERTENSION
     Dosage: 180 MG
     Route: 048
  11. LORAZEPAM [Concomitant]
     Indication: STRESS

REACTIONS (5)
  - INCORRECT DOSE ADMINISTERED [None]
  - STAPHYLOCOCCAL INFECTION [None]
  - DYSPEPSIA [None]
  - BONE NEOPLASM MALIGNANT [None]
  - LUNG NEOPLASM MALIGNANT [None]
